FAERS Safety Report 16098688 (Version 1)
Quarter: 2019Q1

REPORT INFORMATION
  Report Type: Spontaneous
  Country: DK (occurrence: DK)
  Receive Date: 20190321
  Receipt Date: 20190321
  Transmission Date: 20190418
  Serious: Yes (Other)
  Sender: FDA-Public Use
  Company Number: DK-BAXTER-2019BAX005132

PATIENT
  Age: 52 Year
  Sex: Female

DRUGS (5)
  1. EPIRUBICIN ACTAVIS [Suspect]
     Active Substance: EPIRUBICIN
     Indication: BREAST CANCER
     Dosage: STRENGTH: UNKNOWN, THE PATIENT HAS UNDERGONE THE THERAPY A TOTAL OF THREE TIMES.
     Route: 065
     Dates: start: 20100930, end: 2010
  2. TAXOTERE [Suspect]
     Active Substance: DOCETAXEL
     Indication: BREAST CANCER
     Dosage: STRENGTH: UNKNOWN, TREATED ON FOLLOWING DATES: 17NOV2010, 08DEC2010 AND 29DEC2010
     Route: 065
     Dates: start: 2010, end: 2010
  3. TAMOXIFEN [Suspect]
     Active Substance: TAMOXIFEN
     Indication: BREAST CANCER
     Dosage: STRENGTH: UNKNOWN
     Route: 065
     Dates: start: 2011
  4. SENDOXAN [Suspect]
     Active Substance: CYCLOPHOSPHAMIDE
     Indication: BREAST CANCER
     Dosage: STRENGTH: UNKNOWN, THE PATIENT HAS UNDERGONE THE THERAPY A TOTAL OF THREE TIMES.
     Route: 065
     Dates: start: 20100930, end: 2010
  5. HERCEPTIN [Suspect]
     Active Substance: TRASTUZUMAB
     Indication: BREAST CANCER
     Dosage: DOSE: 850 MG, 650 MG, 650 MG. STRENGTH: UNKNOWN, TREATMENTS ON FOLLOWING DATES: 15NOV2010; 08DEC2010
     Route: 065
     Dates: start: 20101115, end: 20101229

REACTIONS (6)
  - Pain in extremity [Unknown]
  - Pain [Unknown]
  - Paraesthesia [Unknown]
  - Fatigue [Unknown]
  - Polyneuropathy [Unknown]
  - Arthralgia [Unknown]

NARRATIVE: CASE EVENT DATE: 2014
